FAERS Safety Report 7954208 (Version 5)
Quarter: 2013Q1

REPORT INFORMATION
  Report Type: Spontaneous
  Country: BR (occurrence: BR)
  Receive Date: 20110520
  Receipt Date: 20130101
  Transmission Date: 20140127
  Serious: Yes (Hospitalization, Other)
  Sender: FDA-Public Use
  Company Number: PHHY2011BR40336

PATIENT
  Sex: Male
  Weight: 200 kg

DRUGS (6)
  1. SANDOSTATIN LAR [Suspect]
     Indication: ACROMEGALY
     Dosage: 30 MG, EVERY 30 DAYS
     Route: 030
     Dates: start: 200006
  2. SANDOSTATIN LAR [Suspect]
     Dosage: 30 MG, EVERY 30 DAYS
     Route: 030
     Dates: start: 20121216, end: 20121216
  3. TEGRETOL [Suspect]
     Indication: CONVULSION
     Dosage: 2 DF, DAILY
  4. TEGRETOL [Suspect]
     Dosage: 3 DF, DAILY
  5. TEGRETOL [Suspect]
     Dosage: 4 DF, DAILY
  6. TESTOSTERONE CIPIONATE [Concomitant]
     Indication: HORMONE REPLACEMENT THERAPY
     Route: 065

REACTIONS (22)
  - Cerebral ischaemia [Unknown]
  - Lung infection [Unknown]
  - Musculoskeletal stiffness [Unknown]
  - Depression [Unknown]
  - Liver disorder [Unknown]
  - Nephrolithiasis [Unknown]
  - Convulsion [Unknown]
  - Dyspnoea [Unknown]
  - Cholelithiasis [Unknown]
  - Hypertension [Unknown]
  - Sleep apnoea syndrome [Unknown]
  - Musculoskeletal pain [Unknown]
  - Arrhythmia [Unknown]
  - Hyperglycaemia [Unknown]
  - Hyperhidrosis [Unknown]
  - Hormone level abnormal [Unknown]
  - Feeling abnormal [Unknown]
  - Weight decreased [Unknown]
  - Pain in extremity [Unknown]
  - Somnolence [Unknown]
  - Dizziness [Unknown]
  - Weight increased [Unknown]
